FAERS Safety Report 6419580-X (Version None)
Quarter: 2009Q4

REPORT INFORMATION
  Report Type: 
  Country: None (occurrence: None)
  Receive Date: 20091027
  Receipt Date: 20091019
  Transmission Date: 20100525
  Serious: Yes (Life-Threatening, Hospitalization, Disabling)
  Sender: FDA-Public Use
  Company Number: 2009011795

PATIENT
  Age: 64 Year
  Sex: Female

DRUGS (3)
  1. TREANDA [Suspect]
     Indication: BONE MARROW TRANSPLANT
     Dosage: 170 MG, CYCLIC, INTRAVENOUS
     Route: 042
     Dates: start: 20090721, end: 20090819
  2. TREANDA [Suspect]
     Indication: CHRONIC LYMPHOCYTIC LEUKAEMIA
     Dosage: 170 MG, CYCLIC, INTRAVENOUS
     Route: 042
     Dates: start: 20090721, end: 20090819
  3. RITUXAN [Suspect]
     Indication: CHRONIC LYMPHOCYTIC LEUKAEMIA
     Dosage: 638 MG, CYCLIC, INTRAVENOUS
     Route: 042
     Dates: start: 20090721, end: 20090818

REACTIONS (4)
  - CONFUSIONAL STATE [None]
  - JC VIRUS TEST POSITIVE [None]
  - LUMBAR PUNCTURE ABNORMAL [None]
  - MEMORY IMPAIRMENT [None]
